FAERS Safety Report 7646941-3 (Version None)
Quarter: 2011Q3

REPORT INFORMATION
  Report Type: 
  Country: None (occurrence: None)
  Receive Date: 20110801
  Receipt Date: 20110725
  Transmission Date: 20111222
  Serious: Yes (Hospitalization, Disabling, Other)
  Sender: FDA-Public Use
  Company Number: US-BAYER-2011-020007

PATIENT
  Age: 37 Year
  Sex: Female

DRUGS (7)
  1. FLUOXETINE [Concomitant]
     Indication: AFFECT LABILITY
  2. ASPIRIN [Concomitant]
     Indication: CEREBROVASCULAR ACCIDENT PROPHYLAXIS
  3. FLUOXETINE [Concomitant]
     Indication: AFFECTIVE DISORDER
  4. LIPITOR [Concomitant]
     Indication: CEREBROVASCULAR ACCIDENT PROPHYLAXIS
  5. YASMIN [Suspect]
     Indication: CONTRACEPTION
     Dosage: UNK
     Route: 048
     Dates: start: 19980101, end: 20080101
  6. ATORVASTATIN [Concomitant]
     Indication: CEREBROVASCULAR ACCIDENT PROPHYLAXIS
  7. ZOLOFT [Concomitant]
     Indication: DEPRESSION

REACTIONS (8)
  - EMBOLIC STROKE [None]
  - PAIN [None]
  - ANXIETY [None]
  - DISORIENTATION [None]
  - ANHEDONIA [None]
  - VISUAL ACUITY REDUCED [None]
  - HEMIANOPIA HOMONYMOUS [None]
  - INJURY [None]
